FAERS Safety Report 9276397 (Version 1)
Quarter: 2013Q2

REPORT INFORMATION
  Report Type: Spontaneous
  Country: US (occurrence: US)
  Receive Date: 20130507
  Receipt Date: 20130507
  Transmission Date: 20140414
  Serious: Yes (Death)
  Sender: FDA-Public Use
  Company Number: US-GLAXOSMITHKLINE-A1022686A

PATIENT
  Age: 57 Year
  Sex: Female

DRUGS (7)
  1. VOTRIENT [Suspect]
     Indication: RENAL CANCER
     Dosage: 800MG PER DAY
     Route: 048
     Dates: start: 20121202
  2. AFINITOR [Suspect]
     Indication: RENAL CANCER
     Dosage: 10MG PER DAY
     Route: 048
     Dates: start: 20130201
  3. PROPRANOLOL [Concomitant]
     Route: 065
  4. PAXIL [Concomitant]
     Route: 048
  5. MULTIVITAMIN WOMEN [Concomitant]
     Route: 048
  6. TYLENOL [Concomitant]
     Route: 048
  7. HYDROCODONE/APAP [Concomitant]

REACTIONS (1)
  - Death [Fatal]
